FAERS Safety Report 6095258-X (Version None)
Quarter: 2009Q1

REPORT INFORMATION
  Report Type: 
  Country: None (occurrence: None)
  Receive Date: 20090226
  Receipt Date: 20090226
  Transmission Date: 20090719
  Serious: Yes (Death)
  Sender: FDA-Public Use
  Company Number: None

PATIENT
  Sex: Male
  Weight: 57.1532 kg

DRUGS (1)
  1. TRUVADA [Suspect]

REACTIONS (3)
  - HEPATOTOXICITY [None]
  - MEDICATION ERROR [None]
  - OFF LABEL USE [None]
